FAERS Safety Report 9106821 (Version 1)
Quarter: 2013Q1

REPORT INFORMATION
  Report Type: Spontaneous
  Country: GB (occurrence: GB)
  Receive Date: 20130221
  Receipt Date: 20130221
  Transmission Date: 20140127
  Serious: Yes (Hospitalization)
  Sender: FDA-Public Use
  Company Number: GB-SANOFI-AVENTIS-2013SA015845

PATIENT
  Age: 82 Year
  Sex: Male

DRUGS (5)
  1. LASIX [Suspect]
  2. ANTITHROMBOTIC AGENTS [Suspect]
     Indication: THROMBOSIS PROPHYLAXIS
     Route: 048
     Dates: start: 20110420, end: 20121227
  3. DOXAZOSIN [Concomitant]
     Dates: start: 2006
  4. VERAPAMIL [Concomitant]
     Dates: start: 2001
  5. LISINOPRIL [Concomitant]
     Dates: start: 2006

REACTIONS (2)
  - Haematuria [Recovered/Resolved]
  - Renal impairment [Recovered/Resolved]
